FAERS Safety Report 4615793-8 (Version None)
Quarter: 2005Q2

REPORT INFORMATION
  Report Type: 
  Country: None (occurrence: None)
  Receive Date: 20050310
  Receipt Date: 20041215
  Transmission Date: 20051028
  Serious: Yes (Hospitalization, Disabling)
  Sender: FDA-Public Use
  Company Number: A03200401902

PATIENT
  Age: 49 Year
  Sex: Female
  Weight: 73 kg

DRUGS (16)
  1. ELOXATIN [Suspect]
     Indication: COLON CANCER
     Dosage: 160 MG Q2W - INTRAVENOUS NOS
     Route: 042
     Dates: start: 20040518, end: 20040518
  2. ELOXATIN [Suspect]
     Indication: METASTASES TO LIVER
     Dosage: 160 MG Q2W - INTRAVENOUS NOS
     Route: 042
     Dates: start: 20040518, end: 20040518
  3. FLUOROURACIL [Suspect]
     Indication: COLON CANCER
     Dosage: 760 MG BOLUS AND 1140 MG X 44 HOURS - INTRAVENOUS NOS
     Route: 042
     Dates: start: 20040518, end: 20040519
  4. FLUOROURACIL [Suspect]
     Indication: METASTASES TO LIVER
     Dosage: 760 MG BOLUS AND 1140 MG X 44 HOURS - INTRAVENOUS NOS
     Route: 042
     Dates: start: 20040518, end: 20040519
  5. LEUCOVORIN CALCIUM [Suspect]
     Indication: COLON CANCER
     Dosage: INTRAVENOUS NOS
     Route: 042
     Dates: start: 20040518, end: 20040518
  6. LEUCOVORIN CALCIUM [Suspect]
     Indication: METASTASES TO LIVER
     Dosage: INTRAVENOUS NOS
     Route: 042
     Dates: start: 20040518, end: 20040518
  7. CAMPTOSAR [Suspect]
     Dates: start: 20040728, end: 20040728
  8. EPOGEN [Concomitant]
  9. FILGRASTIM [Concomitant]
  10. SERTRALINE HYDROCHLORIDE [Concomitant]
  11. POTASSIUM CHLORIDE [Concomitant]
  12. MAGNESIUM [Concomitant]
  13. WARFARIN SODIUM [Concomitant]
  14. ONDANSETRON HYDROCHLORIDE [Concomitant]
  15. DEXAMETHASONE [Concomitant]
  16. CETUXIMAB [Suspect]
     Dates: start: 20040811, end: 20040811

REACTIONS (10)
  - ANAEMIA [None]
  - ASTHENIA [None]
  - COORDINATION ABNORMAL [None]
  - DIARRHOEA [None]
  - DIPLOPIA [None]
  - FALL [None]
  - HYPOKALAEMIA [None]
  - NEUROPATHY PERIPHERAL [None]
  - NEUTROPENIC SEPSIS [None]
  - PERFORMANCE STATUS DECREASED [None]
